FAERS Safety Report 9530929 (Version 1)
Quarter: 2013Q3

REPORT INFORMATION
  Report Type: Spontaneous
  Country: US (occurrence: None)
  Receive Date: 20130916
  Receipt Date: 20130916
  Transmission Date: 20140515
  Serious: Yes (Hospitalization)
  Sender: FDA-Public Use
  Company Number: None

PATIENT
  Sex: Male
  Weight: 118.2 kg

DRUGS (1)
  1. MELOXICAM [Suspect]
     Indication: PAIN
     Dosage: MG PO
     Route: 048
     Dates: start: 20100507, end: 20111202

REACTIONS (1)
  - Gastric ulcer haemorrhage [None]
